FAERS Safety Report 5001380-9 (Version None)
Quarter: 2006Q2

REPORT INFORMATION
  Report Type: 
  Country: None (occurrence: None)
  Receive Date: 20060512
  Receipt Date: 20060206
  Transmission Date: 20061013
  Serious: Yes (Hospitalization)
  Sender: FDA-Public Use
  Company Number: DE-MERCK-0602DEU00024

PATIENT
  Age: 4 Year
  Weight: 15 kg

DRUGS (1)
  1. SINGULAIR [Suspect]
     Route: 048
     Dates: start: 20010328, end: 20010328

REACTIONS (2)
  - ARRHYTHMIA [None]
  - OVERDOSE [None]
